FAERS Safety Report 6535206-9 (Version None)
Quarter: 2010Q1

REPORT INFORMATION
  Report Type: 
  Country: None (occurrence: None)
  Receive Date: 20100111
  Receipt Date: 20100111
  Transmission Date: 20100710
  Serious: No
  Sender: FDA-Public Use
  Company Number: None

PATIENT
  Sex: Male

DRUGS (2)
  1. PAXIL [Suspect]
     Indication: DEPRESSION
     Dosage: 20 MG QD ORAL
     Route: 048
     Dates: start: 19990101
  2. PAXIL [Suspect]
     Indication: PANIC DISORDER
     Dosage: 20 MG QD ORAL
     Route: 048
     Dates: start: 19990101

REACTIONS (3)
  - HALLUCINATION [None]
  - NIGHTMARE [None]
  - PRODUCT SUBSTITUTION ISSUE [None]
